FAERS Safety Report 8671445 (Version 2)
Quarter: 2012Q4

REPORT INFORMATION
  Report Type: 
  Country: CA (occurrence: CA)
  Receive Date: 20120718
  Receipt Date: 20120912
  Transmission Date: 20130627
  Serious: Yes (Death, Other)
  Sender: FDA-Public Use
  Company Number: CA-ACTELION-A-US2012-68457

PATIENT
  Age: 34 Year
  Sex: Male

DRUGS (1)
  1. TRACLEER [Suspect]
     Indication: PULMONARY ARTERIAL HYPERTENSION
     Dosage: UNK
     Route: 048
     Dates: start: 200610, end: 20120519

REACTIONS (4)
  - Cardiogenic shock [Fatal]
  - Multi-organ failure [Fatal]
  - Schwannoma [Unknown]
  - Thoracic operation [Unknown]
